FAERS Safety Report 5481553-1 (Version None)
Quarter: 2007Q4

REPORT INFORMATION
  Report Type: 
  Country: None (occurrence: None)
  Receive Date: 20071010
  Receipt Date: 20071001
  Transmission Date: 20080405
  Serious: Yes (Hospitalization, Other)
  Sender: FDA-Public Use
  Company Number: BR-BRISTOL-MYERS SQUIBB COMPANY-13924964

PATIENT
  Age: 64 Year
  Sex: Male

DRUGS (4)
  1. CARBOPLATIN [Suspect]
     Indication: SQUAMOUS CELL CARCINOMA
     Dosage: AREA UNDER THE CURVE, 5 INTRAVENOUSLY ON DAY 1.
     Route: 042
     Dates: start: 20030701
  2. CAPECITABINE [Suspect]
     Indication: SQUAMOUS CELL CARCINOMA
     Dosage: 28 DAY CYCLE.
     Route: 048
     Dates: start: 20030701
  3. DOCETAXEL [Suspect]
     Indication: SQUAMOUS CELL CARCINOMA
     Route: 042
     Dates: start: 20030701
  4. RADIATION THERAPY [Suspect]
     Indication: SQUAMOUS CELL CARCINOMA
     Dosage: TOTAL- 72GY OVER 6 WEEKS IN 42 FRACTIONS. 54GY IN 30 FRACTIONS + 18GY BOOST(TWICE/DAY FOR 12 DAYS)

REACTIONS (4)
  - MUCOSAL INFLAMMATION [None]
  - NECROTISING FASCIITIS [None]
  - RADIATION SKIN INJURY [None]
  - SEPTIC SHOCK [None]
